FAERS Safety Report 6473112-9 (Version None)
Quarter: 2009Q4

REPORT INFORMATION
  Report Type: 
  Country: None (occurrence: None)
  Receive Date: 20091204
  Receipt Date: 20080605
  Transmission Date: 20100525
  Serious: Yes (Other)
  Sender: FDA-Public Use
  Company Number: GB-ELI_LILLY_AND_COMPANY-GB200806001390

PATIENT
  Sex: Male

DRUGS (9)
  1. HUMALOG [Suspect]
     Dosage: 60 IU, 4/D
  2. HUMULIN N [Suspect]
     Dosage: 50 IU, DAILY (1/D)
  3. HUMULIN N [Suspect]
     Dosage: 25 IU, EACH EVENING BEFORE BED
  4. CO-CODAMOL [Concomitant]
     Dosage: FOUR - EIGHT TABLETS PER DAY
  5. ENALAPRIL [Concomitant]
     Dosage: 25 MG, EACH MORNING
  6. ATENOLOL [Concomitant]
     Dosage: 25 MG, UNKNOWN
  7. LANSOPRAZOLE [Concomitant]
     Dosage: 30 MG, EACH MORNING AND IF NEEDED IN THE EVENING
  8. ISOSORBIDE MONONITRATE [Concomitant]
     Dosage: 60 MG, DAILY (1/D)
  9. ASPIRIN [Concomitant]
     Dosage: 75 MG, EACH MORNING

REACTIONS (7)
  - BLOOD GLUCOSE INCREASED [None]
  - BURNING SENSATION [None]
  - EXTRASYSTOLES [None]
  - INSOMNIA [None]
  - IRRITABILITY [None]
  - PAIN IN EXTREMITY [None]
  - SUICIDE ATTEMPT [None]
